FAERS Safety Report 7544802-1 (Version None)
Quarter: 2011Q2

REPORT INFORMATION
  Report Type: 
  Country: None (occurrence: None)
  Receive Date: 20110614
  Receipt Date: 20110531
  Transmission Date: 20111010
  Serious: Yes (Other)
  Sender: FDA-Public Use
  Company Number: US-BAYER-2011-009748

PATIENT
  Age: 54 Year
  Sex: Male

DRUGS (17)
  1. SPIRIVA [Concomitant]
  2. LORAZEPAM [Concomitant]
  3. METOPROLOL TARTRATE [Concomitant]
  4. POTASSIUM CHLORIDE [Concomitant]
  5. SODIUM CHLORIDE [Concomitant]
  6. VIAGRA [Concomitant]
  7. PROVENTIL [Concomitant]
  8. ADVAIR DISKUS 100/50 [Concomitant]
  9. OXYCODONE [Concomitant]
  10. HYDROCODONE BITARTRATE AND ACETAMINOPHEN [Concomitant]
  11. DOXAZOSIN MESYLATE [Concomitant]
  12. NEXAVAR [Suspect]
     Indication: SOFT TISSUE NEOPLASM
     Dosage: 400 MG, BID
     Route: 048
     Dates: start: 20110116
  13. LORATADINE [Concomitant]
  14. LEVITRA [Concomitant]
  15. FLUTICASONE PROPIONATE [Concomitant]
  16. LISINOPRIL [Concomitant]
  17. ASPIRIN [Concomitant]

REACTIONS (7)
  - DIARRHOEA [None]
  - ERECTILE DYSFUNCTION [None]
  - RASH [None]
  - URINARY RETENTION [None]
  - SKIN EXFOLIATION [None]
  - FATIGUE [None]
  - VOMITING [None]
